FAERS Safety Report 6075589-X (Version None)
Quarter: 2009Q1

REPORT INFORMATION
  Report Type: 
  Country: None (occurrence: None)
  Receive Date: 20090212
  Receipt Date: 20090130
  Transmission Date: 20090719
  Serious: Yes (Hospitalization, Other)
  Sender: FDA-Public Use
  Company Number: JP-ELI_LILLY_AND_COMPANY-JP200812005720

PATIENT
  Sex: Female
  Weight: 1.284 kg

DRUGS (5)
  1. HUMALOG [Suspect]
     Indication: TYPE 1 DIABETES MELLITUS
     Dosage: 26 IU, DAILY (1/D)
     Route: 064
     Dates: start: 20070101, end: 20071107
  2. HUMALOG [Suspect]
     Dosage: 28 IU, DAILY (1/D)
     Route: 064
     Dates: start: 20071108, end: 20080420
  3. HUMALOG [Suspect]
     Dosage: 35 IU, DAILY (1/D)
     Route: 064
     Dates: start: 20080421, end: 20080515
  4. HUMALOG [Suspect]
     Dosage: 35 IU, DAILY (1/D)
     Route: 063
     Dates: start: 20080515, end: 20080515
  5. HUMALOG [Suspect]
     Dosage: 25 IU, DAILY (1/D)
     Route: 063
     Dates: start: 20080516

REACTIONS (5)
  - DRUG EXPOSURE DURING PREGNANCY [None]
  - DRUG EXPOSURE VIA BREAST MILK [None]
  - HYPOGLYCAEMIA NEONATAL [None]
  - NEONATAL RESPIRATORY DISTRESS SYNDROME [None]
  - SMALL FOR DATES BABY [None]
